FAERS Safety Report 7290477-9 (Version None)
Quarter: 2011Q1

REPORT INFORMATION
  Report Type: 
  Country: None (occurrence: None)
  Receive Date: 20110208
  Receipt Date: 20110208
  Transmission Date: 20110831
  Serious: Yes (Other)
  Sender: FDA-Public Use
  Company Number: None

PATIENT
  Age: 65 Year
  Sex: Female

DRUGS (11)
  1. REVLIMID [Suspect]
     Indication: MULTIPLE MYELOMA
     Dosage: 25 MG DAILY ORALLY
     Route: 048
     Dates: start: 20100101, end: 20110101
  2. SPIRIVA [Concomitant]
  3. NORTRIPTYLINE [Concomitant]
  4. ZOLPIDEM [Concomitant]
  5. GABAPENTIN [Concomitant]
  6. ASMANEX TWISTHALER [Concomitant]
  7. NABUMETONE [Concomitant]
  8. LORAZEPAM [Concomitant]
  9. OXYCODONE [Concomitant]
  10. COMBIVENT [Concomitant]
  11. BUPROPION [Concomitant]

REACTIONS (1)
  - RASH [None]
